FAERS Safety Report 6558790-8 (Version None)
Quarter: 2010Q1

REPORT INFORMATION
  Report Type: 
  Country: None (occurrence: None)
  Receive Date: 20100129
  Receipt Date: 20100120
  Transmission Date: 20100710
  Serious: Yes (Congenital Anomaly)
  Sender: FDA-Public Use
  Company Number: GB-WATSON-2010-00878

PATIENT
  Sex: Male
  Weight: 2.52 kg

DRUGS (2)
  1. LAMOTRIGINE [Suspect]
     Indication: EPILEPSY
     Dosage: UNK
     Route: 065
     Dates: start: 20001201
  2. FOLIC ACID [Concomitant]
     Indication: PROPHYLAXIS OF NEURAL TUBE DEFECT
     Dosage: 5 MG, 1
     Route: 048
     Dates: start: 20010401

REACTIONS (4)
  - DEAFNESS UNILATERAL [None]
  - DEVELOPMENTAL DELAY [None]
  - DYSMORPHISM [None]
  - HYDRONEPHROSIS [None]
